FAERS Safety Report 8805763 (Version 1)
Quarter: 2012Q4

REPORT INFORMATION
  Report Type: Spontaneous
  Country: IT (occurrence: None)
  Receive Date: 20120918
  Receipt Date: 20120918
  Transmission Date: 20130627
  Serious: Yes (Death)
  Sender: FDA-Public Use
  Company Number: IT-HORIZON-DUE-0012-2012

PATIENT
  Age: 51 Year
  Sex: Male

DRUGS (7)
  1. IBUPROFEN [Suspect]
     Dosage: 30 in 1 total
     Route: 048
  2. MELOXICAM (MELOXICAM) [Concomitant]
  3. CELECOXIB (CELECOXIB) [Concomitant]
  4. RISPERIDONE (RISPERIDONE) [Concomitant]
  5. CITALOPRAM (CITALOPRAM) [Concomitant]
  6. KETOROLAC (KETOROLAC) [Concomitant]
  7. BROMAZEPAM (BROMAZEPAM) [Concomitant]

REACTIONS (13)
  - Toxicity to various agents [None]
  - Suicide attempt [None]
  - Intentional overdose [None]
  - Coma [None]
  - Hypotension [None]
  - Metabolic acidosis [None]
  - Respiratory depression [None]
  - Oedema [None]
  - Cardiomyopathy [None]
  - Pulmonary oedema [None]
  - Hepatic congestion [None]
  - Renal disorder [None]
  - Drug level increased [None]
